FAERS Safety Report 7495979-8 (Version None)
Quarter: 2011Q2

REPORT INFORMATION
  Report Type: 
  Country: None (occurrence: None)
  Receive Date: 20110523
  Receipt Date: 20110516
  Transmission Date: 20111010
  Serious: Yes (Other)
  Sender: FDA-Public Use
  Company Number: MY-PFIZER INC-2011109652

PATIENT
  Age: 32 Year
  Sex: Female

DRUGS (3)
  1. CEFTRIAXONE [Concomitant]
     Dosage: UNK
  2. METRONIDAZOLE [Concomitant]
     Dosage: UNK
  3. DILANTIN [Suspect]
     Indication: STATUS EPILEPTICUS
     Dosage: 300MG DAILY
     Route: 042

REACTIONS (2)
  - URTICARIA [None]
  - HYPOTENSION [None]
